FAERS Safety Report 6120482-7 (Version None)
Quarter: 2009Q1

REPORT INFORMATION
  Report Type: 
  Country: None (occurrence: None)
  Receive Date: 20090312
  Receipt Date: 20090305
  Transmission Date: 20090719
  Serious: Yes (Other)
  Sender: FDA-Public Use
  Company Number: GXKR2009DE02771

PATIENT
  Age: 60 Year
  Sex: Male
  Weight: 80 kg

DRUGS (10)
  1. AMANTADINE HCL [Suspect]
     Indication: LISTLESS
     Dosage: 500
     Dates: start: 20081125, end: 20081209
  2. CITALOPRAM (NGX) (CITALOPRAM) UNKNOWN, 20MG [Suspect]
     Indication: ANXIETY DISORDER
     Dosage: 20 MG, QD, ORAL
     Route: 048
     Dates: start: 20081126, end: 20081209
  3. ACETYLSALICYLIC ACID SRT [Concomitant]
  4. CLEXANE (ENOXAPARIN SODIU, HEPARIN-FRACTION, SODIUM SALT) [Concomitant]
  5. CLONIDIN RIKER (CLONIDINE HYDROCHLORIDE) [Concomitant]
  6. LASIX [Concomitant]
  7. METOCLOPRAMIDE HYDROCHLORIDE [Concomitant]
  8. PANTOPRAZOLE SODIUM [Concomitant]
  9. PIPERACILLIN [Concomitant]
  10. GENTAMICIN [Concomitant]

REACTIONS (1)
  - THROMBOCYTOPENIA [None]
